FAERS Safety Report 8125500-2 (Version None)
Quarter: 2012Q1

REPORT INFORMATION
  Report Type: 
  Country: None (occurrence: None)
  Receive Date: 20120209
  Receipt Date: 20120208
  Transmission Date: 20120608
  Serious: No
  Sender: FDA-Public Use
  Company Number: US-BAYER-2012-013057

PATIENT

DRUGS (2)
  1. PREMARIN [Concomitant]
  2. CIPROFLOXACIN [Suspect]

REACTIONS (1)
  - FATIGUE [None]
